FAERS Safety Report 9454801 (Version 1)
Quarter: 2013Q3

REPORT INFORMATION
  Report Type: Spontaneous
  Country: PH (occurrence: PH)
  Receive Date: 20130812
  Receipt Date: 20130812
  Transmission Date: 20140515
  Serious: Yes (Life-Threatening, Hospitalization)
  Sender: FDA-Public Use
  Company Number: PH-MYLANLABS-2013S1017190

PATIENT
  Age: 55 Year
  Sex: Female

DRUGS (8)
  1. THIAMAZOLE [Suspect]
     Indication: BASEDOW^S DISEASE
     Dosage: 40MG/DAY
     Route: 065
  2. PIOGLITAZONE [Concomitant]
     Indication: DIABETES MELLITUS
     Dosage: 15MG/DAY
     Route: 065
  3. GLIMEPIRIDE [Concomitant]
     Indication: DIABETES MELLITUS
     Dosage: 1MG/DAY
     Route: 065
  4. TELMISARTAN [Concomitant]
     Indication: HYPERTENSION
     Dosage: 40MG DAILY
     Route: 065
  5. HYDROCHLOROTHIAZIDE [Concomitant]
     Indication: HYPERTENSION
     Dosage: 12.5MG DAILY
     Route: 065
  6. SINEMET [Concomitant]
     Indication: PARKINSON^S DISEASE
     Route: 065
  7. SALMETEROL [Concomitant]
     Indication: ASTHMA
     Route: 055
  8. FLUTICASONE PROPIONATE [Concomitant]
     Indication: ASTHMA
     Route: 055

REACTIONS (4)
  - Aplastic anaemia [Recovering/Resolving]
  - Micrococcus infection [Recovering/Resolving]
  - Klebsiella infection [Recovering/Resolving]
  - Acinetobacter infection [Recovering/Resolving]
